FAERS Safety Report 21697732 (Version 1)
Quarter: 2022Q4

REPORT INFORMATION
  Report Type: Report from Study
  Country: MX (occurrence: MX)
  Receive Date: 20221208
  Receipt Date: 20221208
  Transmission Date: 20230113
  Serious: Yes (Other)
  Sender: FDA-Public Use
  Company Number: MX-002147023-NVSC2022MX283721

PATIENT
  Sex: Female
  Weight: 74 kg

DRUGS (2)
  1. EXFORGE [Suspect]
     Active Substance: AMLODIPINE BESYLATE\VALSARTAN
     Indication: Hypertension
     Dosage: UNK (10/320 MG)
     Route: 048
     Dates: start: 202211, end: 202211
  2. EXFORGE HCT [Suspect]
     Active Substance: AMLODIPINE BESYLATE\HYDROCHLOROTHIAZIDE\VALSARTAN
     Indication: Hypertension
     Dosage: 2 DOSAGE FORM, QD (5/160/12.5 MG)
     Route: 048

REACTIONS (8)
  - Hypertension [Unknown]
  - Gait disturbance [Unknown]
  - Cardiovascular disorder [Unknown]
  - Anxiety [Unknown]
  - Memory impairment [Unknown]
  - Sleep disorder [Unknown]
  - Pain [Unknown]
  - Off label use [Unknown]
